FAERS Safety Report 15338652 (Version 2)
Quarter: 2019Q1

REPORT INFORMATION
  Report Type: Spontaneous
  Country: US (occurrence: US)
  Receive Date: 20180831
  Receipt Date: 20190111
  Transmission Date: 20190417
  Serious: No
  Sender: FDA-Public Use
  Company Number: US-INTERCEPT-PMOCA2018001007

PATIENT

DRUGS (17)
  1. ATORVASTATIN [Concomitant]
     Active Substance: ATORVASTATIN
  2. CYPROHEPTADINE. [Concomitant]
     Active Substance: CYPROHEPTADINE
  3. ACYCLOVIR. [Concomitant]
     Active Substance: ACYCLOVIR
  4. OCALIVA [Suspect]
     Active Substance: OBETICHOLIC ACID
     Dosage: 5 MG, QD
     Route: 048
     Dates: start: 20180425
  5. METHYLPREDNISOLONE. [Concomitant]
     Active Substance: METHYLPREDNISOLONE
  6. UDCA [Concomitant]
     Active Substance: URSODIOL
     Dosage: 300 MG, TID
  7. HYDROXYZINE [Concomitant]
     Active Substance: HYDROXYZINE HYDROCHLORIDE
  8. HYDROCORTISONE. [Concomitant]
     Active Substance: HYDROCORTISONE
  9. TRIAMCINOLONE [Concomitant]
     Active Substance: TRIAMCINOLONE
  10. OCALIVA [Suspect]
     Active Substance: OBETICHOLIC ACID
     Dosage: UNK
     Route: 065
     Dates: start: 20180726
  11. CYCLOBENZAPRINE. [Concomitant]
     Active Substance: CYCLOBENZAPRINE
  12. AMLODIPINE [Concomitant]
     Active Substance: AMLODIPINE BESYLATE
  13. LISINOPRIL. [Concomitant]
     Active Substance: LISINOPRIL
  14. DICLOFENAC [Concomitant]
     Active Substance: DICLOFENAC
  15. OCALIVA [Suspect]
     Active Substance: OBETICHOLIC ACID
     Indication: PRIMARY BILIARY CHOLANGITIS
     Dosage: 5 MG, QD
     Route: 048
     Dates: start: 20180424, end: 20180719
  16. MUPIROCIN. [Concomitant]
     Active Substance: MUPIROCIN
  17. POLYETHYLENE GLYCOL [Concomitant]
     Active Substance: POLYETHYLENE GLYCOLS

REACTIONS (9)
  - Decreased activity [Unknown]
  - Paraesthesia [Unknown]
  - Back pain [Unknown]
  - Osteoporosis [Unknown]
  - Joint swelling [Unknown]
  - Pruritus generalised [Not Recovered/Not Resolved]
  - Hyperhidrosis [Not Recovered/Not Resolved]
  - Back injury [Unknown]
  - Insomnia [Unknown]

NARRATIVE: CASE EVENT DATE: 2018
